FAERS Safety Report 9774904 (Version 1)
Quarter: 2013Q4

REPORT INFORMATION
  Report Type: Spontaneous
  Country: US (occurrence: None)
  Receive Date: 20131218
  Receipt Date: 20131218
  Transmission Date: 20140711
  Serious: Yes (Hospitalization, Other)
  Sender: FDA-Public Use
  Company Number: DAV-AE-AMO-13-06

PATIENT
  Age: 45 Year
  Sex: Female

DRUGS (1)
  1. AMOXICILLIN [Suspect]
     Indication: TOOTH EXTRACTION
     Dosage: 875 MG, BID X 5 DAYS, PO
     Route: 048

REACTIONS (5)
  - Hepatotoxicity [None]
  - Biliary tract disorder [None]
  - Fibrosis [None]
  - Hepatitis acute [None]
  - Cholestasis [None]
